FAERS Safety Report 9014732 (Version 3)
Quarter: 2013Q1

REPORT INFORMATION
  Report Type: Spontaneous
  Country: JP (occurrence: JP)
  Receive Date: 20130115
  Receipt Date: 20130125
  Transmission Date: 20140127
  Serious: Yes (Other)
  Sender: FDA-Public Use
  Company Number: JP-PFIZER INC-2013016904

PATIENT
  Age: 89 Year
  Sex: Male

DRUGS (5)
  1. HALCION [Suspect]
     Indication: INSOMNIA
     Dosage: 0.25 MG, 1X/DAY
     Route: 048
     Dates: start: 20121117, end: 20130111
  2. DONEPEZIL [Concomitant]
     Dosage: UNK
  3. MUCODYNE [Concomitant]
     Dosage: UNK
  4. BUP-4 [Concomitant]
     Dosage: UNK
  5. MAGMITT [Concomitant]
     Dosage: UNK

REACTIONS (4)
  - Drug withdrawal convulsions [Recovered/Resolved]
  - Blood pressure increased [Recovered/Resolved]
  - Nocturia [Unknown]
  - Gait disturbance [Recovered/Resolved]
